FAERS Safety Report 4471635-5 (Version None)
Quarter: 2004Q4

REPORT INFORMATION
  Report Type: 
  Country: None (occurrence: None)
  Receive Date: 20041012
  Receipt Date: 20040908
  Transmission Date: 20050328
  Serious: Yes (Death)
  Sender: FDA-Public Use
  Company Number: JP-BRISTOL-MYERS SQUIBB COMPANY-12701686

PATIENT
  Age: 59 Year
  Sex: Male

DRUGS (5)
  1. ENDOXAN [Suspect]
     Indication: ADULT T-CELL LYMPHOMA/LEUKAEMIA
     Route: 041
     Dates: start: 19990526, end: 19990526
  2. ETOPOSIDE [Suspect]
     Indication: ADULT T-CELL LYMPHOMA/LEUKAEMIA
     Dosage: EVERY OTHER DAY
     Route: 048
     Dates: start: 19990501, end: 19991020
  3. ADRIACIN [Suspect]
     Indication: ADULT T-CELL LYMPHOMA/LEUKAEMIA
     Route: 041
     Dates: start: 19990526, end: 19990526
  4. ONCOVIN [Suspect]
     Indication: ADULT T-CELL LYMPHOMA/LEUKAEMIA
     Route: 042
     Dates: start: 19990526, end: 19990526
  5. PREDNISOLONE [Suspect]
     Indication: ADULT T-CELL LYMPHOMA/LEUKAEMIA
     Dosage: 10 MG/D FROM 03-MAR-1999 TO 26-MAY-1999; 100 MG ON 26-MAY-1999; 10 MG/D UNTIL 20-OCT-1999
     Route: 048
     Dates: start: 19990303, end: 19991020

REACTIONS (1)
  - HEPATITIS B [None]
